FAERS Safety Report 7441110-4 (Version None)
Quarter: 2011Q2

REPORT INFORMATION
  Report Type: 
  Country: None (occurrence: None)
  Receive Date: 20110427
  Receipt Date: 20110418
  Transmission Date: 20111010
  Serious: Yes (Other)
  Sender: FDA-Public Use
  Company Number: US-MYLANLABS-2011S1006047

PATIENT
  Age: 54 Year
  Sex: Male

DRUGS (8)
  1. VITAMIN B-12 [Concomitant]
  2. FERREX [Concomitant]
  3. SINGULAIR [Concomitant]
  4. TESTIM [Concomitant]
     Dosage: ONE-HALF TUBE DAILY
  5. SIMVASTATIN [Concomitant]
  6. ANUCORT-HC [Concomitant]
  7. ENTOCORT EC [Concomitant]
  8. MERCAPTOPURINE [Suspect]
     Indication: CROHN'S DISEASE
     Route: 048
     Dates: start: 20110226, end: 20110307

REACTIONS (3)
  - JOINT SWELLING [None]
  - GOUT [None]
  - ARTHRALGIA [None]
